FAERS Safety Report 19126182 (Version 64)
Quarter: 2023Q4

REPORT INFORMATION
  Report Type: Spontaneous
  Country: CA (occurrence: CA)
  Receive Date: 20210412
  Receipt Date: 20231227
  Transmission Date: 20240110
  Serious: Yes (Death, Life-Threatening, Hospitalization, Disabling, Other)
  Sender: FDA-Public Use
  Company Number: CA-BAUSCH-BL-2017-018617

PATIENT
  Age: 44 Year
  Sex: Female
  Weight: 70 kg

DRUGS (42)
  1. HYDROCORTISONE BUTYRATE [Suspect]
     Active Substance: HYDROCORTISONE BUTYRATE
     Indication: Rheumatoid arthritis
     Dosage: HYDROCORTISONE BUTYRATE: UNK DATES.1. SOLUTION, ORAL. HYDROCORTISONE : UNK DATES.1. UNK.
     Route: 050
  2. MINOCYCLINE HYDROCHLORIDE [Suspect]
     Active Substance: MINOCYCLINE HYDROCHLORIDE
     Indication: Product used for unknown indication
     Route: 065
  3. MINOCYCLINE HYDROCHLORIDE [Suspect]
     Active Substance: MINOCYCLINE HYDROCHLORIDE
     Route: 065
  4. DILTIAZEM HYDROCHLORIDE [Suspect]
     Active Substance: DILTIAZEM HYDROCHLORIDE
     Indication: Rheumatoid arthritis
     Route: 065
  5. HYDROCORTISONE [Suspect]
     Active Substance: HYDROCORTISONE
     Indication: Rheumatoid arthritis
     Dosage: HYDROCORTISONE
     Route: 058
  6. HYDROCORTISONE [Suspect]
     Active Substance: HYDROCORTISONE
     Dosage: HYDROCORTISONE SODIUM SUCCINATE
     Route: 065
  7. HYDROCORTISONE [Suspect]
     Active Substance: HYDROCORTISONE
     Indication: Rheumatoid arthritis
     Dosage: HYDROCORTISONE: 1. ORAL, 2. CUTANEOUS, 3. BID
     Route: 065
  8. HYDROCORTISONE [Suspect]
     Active Substance: HYDROCORTISONE
     Dosage: HYDROCORTISONE BUTYRATE 1. CREAM
     Route: 065
  9. TRETINOIN [Suspect]
     Active Substance: TRETINOIN
     Indication: Product used for unknown indication
     Route: 065
  10. TRETINOIN [Suspect]
     Active Substance: TRETINOIN
     Route: 065
  11. ATIVAN [Suspect]
     Active Substance: LORAZEPAM
     Indication: Rheumatoid arthritis
     Route: 065
  12. ERYTHROMYCIN [Suspect]
     Active Substance: ERYTHROMYCIN
     Indication: Product used for unknown indication
     Route: 065
  13. LORAZEPAM [Suspect]
     Active Substance: LORAZEPAM
     Indication: Rheumatoid arthritis
     Route: 065
  14. MESALAMINE [Suspect]
     Active Substance: MESALAMINE
     Indication: Crohn^s disease
     Route: 065
  15. ARESTIN [Suspect]
     Active Substance: MINOCYCLINE HYDROCHLORIDE
     Indication: Product used for unknown indication
     Route: 065
  16. ARESTIN [Suspect]
     Active Substance: MINOCYCLINE HYDROCHLORIDE
  17. DICLOFENAC [Suspect]
     Active Substance: DICLOFENAC
     Indication: Rheumatoid arthritis
     Dosage: UNK DATES. 1.50 MG, QD; 2. TBL; 3. TBL, ORAL; 4. OPHTHALMIC, 50 MG; 5. 50 G
     Route: 050
  18. DICLOFENAC [Suspect]
     Active Substance: DICLOFENAC
     Dosage: DICLOFENAC, NOT SPECIFIED
     Route: 065
  19. DICLOFENAC DIETHYLAMINE [Suspect]
     Active Substance: DICLOFENAC DIETHYLAMINE
     Indication: Product used for unknown indication
     Route: 065
  20. DICLOFENAC POTASSIUM [Suspect]
     Active Substance: DICLOFENAC POTASSIUM
     Indication: Product used for unknown indication
     Dosage: UNK DATES; 1. TBL; 2. FILM-COATED TBL, ORAL. 3. 225 MG TABLET ORAL
     Route: 050
  21. DEXAMETHASONE [Suspect]
     Active Substance: DEXAMETHASONE
     Indication: Rheumatoid arthritis
     Route: 048
  22. ALBUTEROL SULFATE [Suspect]
     Active Substance: ALBUTEROL SULFATE
     Indication: Product used for unknown indication
     Route: 065
  23. HYDROCORTISONE ACETATE [Suspect]
     Active Substance: HYDROCORTISONE ACETATE
     Indication: Rheumatoid arthritis
     Route: 065
  24. HYDROCORTISONE ACETATE [Suspect]
     Active Substance: HYDROCORTISONE ACETATE
     Route: 048
  25. HYDROCORTISONE ACETATE [Suspect]
     Active Substance: HYDROCORTISONE ACETATE
     Route: 065
  26. HYDROCORTISONE ACETATE [Suspect]
     Active Substance: HYDROCORTISONE ACETATE
     Route: 061
  27. RAMIPRIL [Suspect]
     Active Substance: RAMIPRIL
     Indication: Product used for unknown indication
     Dosage: NOT SPECIFIED
     Route: 065
  28. TRAMADOL HYDROCHLORIDE [Suspect]
     Active Substance: TRAMADOL HYDROCHLORIDE
     Indication: Product used for unknown indication
     Dosage: NOT SPECIFIED
     Route: 065
  29. TRIAMCINOLONE ACETONIDE [Suspect]
     Active Substance: TRIAMCINOLONE ACETONIDE
     Indication: Rheumatoid arthritis
     Route: 014
  30. CORTISONE [Suspect]
     Active Substance: CORTISONE
     Indication: Rheumatoid arthritis
     Dosage: CORTISONE
     Route: 061
  31. CORTISONE [Suspect]
     Active Substance: CORTISONE
     Dosage: CORTISONE ACETATE: 1. ORAL; 2. TBL; 3. TBL, ORAL; 3. TOPICAL, 25 MG, 20 MG
     Route: 050
  32. TOPICORT [Suspect]
     Active Substance: DESOXIMETASONE
     Indication: Rheumatoid arthritis
     Dosage: UNK DATES; 1. CREAM 0.25 %, CUTANEOUS; 2. CREAM, SC; 3. CREAM, ORAL; 4. CUTANEOUS, INTRACARDIAC
     Route: 050
  33. TOPICORT [Suspect]
     Active Substance: DESOXIMETASONE
     Dosage: UNK DATES; 1. CREAM, TOPICAL; 2. ORAL, OINTMENT; 3. UNK; 4. SC; 5. ORAL; 6. CREAM; 7. OINTMENT,25 MG
     Route: 050
  34. TOPICORT [Suspect]
     Active Substance: DESOXIMETASONE
     Dosage: 8. OINTMENT, UNK; 9. CREAM, 25MG; 10. 5MG; 11. I.V; 12. CUTANEOUS; 13. 25MG, QW, ORAL; 14. ORAL, QW;
     Route: 050
  35. TOPICORT [Suspect]
     Active Substance: DESOXIMETASONE
     Dosage: 15. 25MG, QW; 16. CUTANEOUS, 25 MG; 17. ORAL, 25MG 18. 25 MG; TOPICAL, 19. UNK; ORAL 20. 1DF BID
     Route: 050
  36. TOPICORT [Suspect]
     Active Substance: DESOXIMETASONE
     Dosage: 21. 25MG, QD, 22. 25MG, BID FOR 4 MONTH, 23. 25MG, BID
     Route: 050
  37. TOPICORT [Suspect]
     Active Substance: DESOXIMETASONE
     Dosage: DESOXIMETASONE1. 1DF BID FOR 122 DAYS, 2. 2DF BID FOR 122 DAYS, 3. 3MG QD, 4. 25 MG BID FOR 122 DAYS
     Route: 050
  38. TOPICORT [Suspect]
     Active Substance: DESOXIMETASONE
     Dosage: DESOXIMETASONE 5. 3MG, 6. 25 MG BID, 7. 2DF BID, 8. 25 MG, 9. 25MG QD 10. VAGINAL, 11. 25MG ORAL
     Route: 050
  39. TOPICORT [Suspect]
     Active Substance: DESOXIMETASONE
     Dosage: DESOXIMETASONE 12. ORAL, 13. 10MG ORAL, 14. 5MG ORAL
     Route: 050
  40. DESOXIMETASONE [Suspect]
     Active Substance: DESOXIMETASONE
     Indication: Rheumatoid arthritis
     Dosage: UNK DATES; 1. 1DF BID FOR 122 DAYS, 2. 2DF BID FOR 122 DAYS, 3. 3MG QD, 4. 25 MG BID FOR 122 DAYS
     Route: 050
  41. DESOXIMETASONE [Suspect]
     Active Substance: DESOXIMETASONE
     Dosage: UNK DATES; 5. 3MG, 6. 25 MG BID, 7. 2DF BID, 8. 25 MG, 9. 25MG QD 10. VAGINAL, 11. 25MG ORAL
     Route: 050
  42. DESOXIMETASONE [Suspect]
     Active Substance: DESOXIMETASONE
     Dosage: UNK DATES; 12. ORAL, 13. 10MG ORAL, 14. 5MG ORAL
     Route: 050

REACTIONS (123)
  - Respiratory tract infection [Fatal]
  - Condition aggravated [Fatal]
  - Glossodynia [Fatal]
  - Hand deformity [Fatal]
  - Pemphigus [Fatal]
  - White blood cell count increased [Fatal]
  - Systemic lupus erythematosus [Fatal]
  - Drug intolerance [Fatal]
  - Back injury [Fatal]
  - Anti-cyclic citrullinated peptide antibody positive [Fatal]
  - Infusion related reaction [Fatal]
  - Rheumatoid arthritis [Fatal]
  - Joint swelling [Fatal]
  - General physical health deterioration [Fatal]
  - Synovitis [Fatal]
  - Pyrexia [Fatal]
  - Alopecia [Fatal]
  - Hypersensitivity [Fatal]
  - Colitis ulcerative [Fatal]
  - Blood cholesterol increased [Fatal]
  - Decreased appetite [Fatal]
  - Diarrhoea [Fatal]
  - Dizziness [Fatal]
  - Duodenal ulcer perforation [Fatal]
  - Fibromyalgia [Fatal]
  - Helicobacter infection [Fatal]
  - Tachycardia [Fatal]
  - Taste disorder [Fatal]
  - Liver injury [Fatal]
  - White blood cell count decreased [Fatal]
  - Mobility decreased [Fatal]
  - Musculoskeletal stiffness [Fatal]
  - Nausea [Fatal]
  - Hypoaesthesia [Fatal]
  - Psoriatic arthropathy [Fatal]
  - Live birth [Fatal]
  - Rheumatic fever [Fatal]
  - Sciatica [Fatal]
  - Sinusitis [Fatal]
  - Type 2 diabetes mellitus [Fatal]
  - Coeliac disease [Not Recovered/Not Resolved]
  - Confusional state [Fatal]
  - Folliculitis [Fatal]
  - Rectal haemorrhage [Fatal]
  - Impaired healing [Fatal]
  - Infection [Fatal]
  - Irritable bowel syndrome [Fatal]
  - Nasopharyngitis [Fatal]
  - Urticaria [Fatal]
  - Liver function test increased [Not Recovered/Not Resolved]
  - Sleep disorder due to general medical condition, insomnia type [Fatal]
  - Stomatitis [Fatal]
  - Weight increased [Fatal]
  - Muscle injury [Fatal]
  - Asthma [Fatal]
  - Autoimmune disorder [Fatal]
  - Porphyria acute [Fatal]
  - Contusion [Fatal]
  - Deep vein thrombosis postoperative [Fatal]
  - Onychomycosis [Fatal]
  - Gait inability [Fatal]
  - Lower limb fracture [Fatal]
  - Ill-defined disorder [Fatal]
  - Hip arthroplasty [Fatal]
  - Knee arthroplasty [Fatal]
  - Road traffic accident [Fatal]
  - Osteoarthritis [Fatal]
  - Amnesia [Fatal]
  - Breast cancer stage III [Fatal]
  - Delirium [Fatal]
  - Depression [Fatal]
  - Dislocation of vertebra [Fatal]
  - Grip strength decreased [Fatal]
  - Disability [Not Recovered/Not Resolved]
  - Weight decreased [Fatal]
  - Wound infection [Fatal]
  - Thrombocytopenia [Fatal]
  - Dyspepsia [Fatal]
  - Loss of personal independence in daily activities [Fatal]
  - Migraine [Fatal]
  - Pain in extremity [Fatal]
  - Pericarditis [Fatal]
  - Pneumonia [Fatal]
  - Pulmonary fibrosis [Fatal]
  - X-ray abnormal [Fatal]
  - Anxiety [Fatal]
  - Bursitis [Fatal]
  - Ear infection [Fatal]
  - Exostosis [Fatal]
  - Foot deformity [Fatal]
  - Laryngitis [Fatal]
  - Lupus-like syndrome [Fatal]
  - Retinitis [Fatal]
  - Hepatic cirrhosis [Fatal]
  - Red blood cell sedimentation rate increased [Fatal]
  - Bone erosion [Fatal]
  - Pancreatitis [Fatal]
  - Joint dislocation [Fatal]
  - Malaise [Fatal]
  - Hypercholesterolaemia [Fatal]
  - C-reactive protein increased [Fatal]
  - Crohn^s disease [Fatal]
  - Visual impairment [Fatal]
  - Oedema peripheral [Fatal]
  - Osteoporosis [Fatal]
  - Lung disorder [Fatal]
  - Death neonatal [Not Recovered/Not Resolved]
  - Night sweats [Fatal]
  - Dry mouth [Fatal]
  - Eye injury [Fatal]
  - Bronchitis [Fatal]
  - Lupus vulgaris [Fatal]
  - Psoriasis [Fatal]
  - Epilepsy [Fatal]
  - Drug ineffective [Fatal]
  - Underdose [Fatal]
  - Prescribed underdose [Fatal]
  - Contraindicated product administered [Fatal]
  - Off label use [Fatal]
  - Prescribed overdose [Fatal]
  - Medication error [Fatal]
  - Exposure during pregnancy [Fatal]
  - Product quality issue [Unknown]
